FAERS Safety Report 21368824 (Version 1)
Quarter: 2022Q3

REPORT INFORMATION
  Report Type: Spontaneous
  Country: DE (occurrence: DE)
  Receive Date: 20220923
  Receipt Date: 20220923
  Transmission Date: 20221027
  Serious: Yes (Hospitalization, Other)
  Sender: FDA-Public Use
  Company Number: DE-ADRED-07896-01

PATIENT
  Age: 78 Year
  Sex: Male

DRUGS (4)
  1. INSULIN LISPRO [Suspect]
     Active Substance: INSULIN LISPRO
     Dosage: 1 IE, 50-0-40-0
  2. PANTOPRAZOLE [Concomitant]
     Active Substance: PANTOPRAZOLE
     Dosage: 40 MG, QD, 40 MG, 0-0-1-0
  3. ATORVASTATIN [Concomitant]
     Active Substance: ATORVASTATIN
     Dosage: 40 MG, QD, 40 MG, 0-0-1-0
  4. PANCREATIN [Concomitant]
     Active Substance: PANCRELIPASE
     Dosage: UNK, BID, 25000 IE, 1-0-1-0

REACTIONS (7)
  - Renal impairment [Unknown]
  - General physical health deterioration [Unknown]
  - Personality change [Unknown]
  - Condition aggravated [Unknown]
  - Disorientation [Unknown]
  - Agitation [Unknown]
  - Hypoglycaemia [Unknown]
